FAERS Safety Report 26174136 (Version 1)
Quarter: 2025Q4

REPORT INFORMATION
  Report Type: Spontaneous
  Country: EU (occurrence: EU)
  Receive Date: 20251218
  Receipt Date: 20251218
  Transmission Date: 20260117
  Serious: Yes (Hospitalization)
  Sender: CHEPLAPHARM
  Company Number: None

PATIENT
  Age: 21 Year
  Sex: Male
  Weight: 90 kg

DRUGS (5)
  1. OLANZAPINE [Suspect]
     Active Substance: OLANZAPINE
     Indication: Psychotic disorder
     Dosage: INITIALLY 10 MG MORNING AND EVENING, THEN 5 MG MORNING AND 10 MG EVENING, THEN 10 MG EVENING, THE...
     Route: 048
     Dates: start: 20250607, end: 20251020
  2. OLANZAPINE [Suspect]
     Active Substance: OLANZAPINE
     Indication: Mania
     Dosage: INITIALLY 10 MG MORNING AND EVENING, THEN 5 MG MORNING AND 10 MG EVENING, THEN 10 MG EVENING, THE...
     Route: 048
     Dates: start: 20250607, end: 20251020
  3. OLANZAPINE [Suspect]
     Active Substance: OLANZAPINE
     Indication: Anxiety
     Dosage: INITIALLY 10 MG MORNING AND EVENING, THEN 5 MG MORNING AND 10 MG EVENING, THEN 10 MG EVENING, THE...
     Route: 048
     Dates: start: 20250607, end: 20251020
  4. OLANZAPINE [Suspect]
     Active Substance: OLANZAPINE
     Indication: Restlessness
     Dosage: INITIALLY 10 MG MORNING AND EVENING, THEN 5 MG MORNING AND 10 MG EVENING, THEN 10 MG EVENING, THE...
     Route: 048
     Dates: start: 20250607, end: 20251020
  5. VALPROIC ACID [Concomitant]
     Active Substance: VALPROIC ACID
     Indication: Mania
     Dosage: DAILY DOSE: 1200 MILLIGRAM
     Route: 048
     Dates: start: 20250607, end: 20251020

REACTIONS (4)
  - Weight increased [Recovered/Resolved with Sequelae]
  - Fear of death [Recovered/Resolved with Sequelae]
  - Obesity [Recovered/Resolved with Sequelae]
  - Skin striae [Unknown]

NARRATIVE: CASE EVENT DATE: 20250701
